FAERS Safety Report 8941816 (Version 1)
Quarter: 2012Q4

REPORT INFORMATION
  Report Type: Report from Study
  Country: US (occurrence: US)
  Receive Date: 20121203
  Receipt Date: 20121203
  Transmission Date: 20130627
  Serious: Yes (Hospitalization)
  Sender: FDA-Public Use
  Company Number: US-TEVA-372877USA

PATIENT
  Age: 5 Month
  Sex: Male
  Weight: 7.46 kg

DRUGS (14)
  1. LESTAURTINIB [Suspect]
     Dates: start: 20121107, end: 20121114
  2. CYTARABINE [Suspect]
     Dates: start: 20120906, end: 20121023
  3. DEXAMETHASONE [Suspect]
     Dates: start: 20120906, end: 20121005
  4. DAUNORUBICIN [Suspect]
     Dates: start: 20120906, end: 20120915
  5. CYCLOPHOSPHAMIDE [Suspect]
     Dates: start: 20120906, end: 20121106
  6. ETOPOSIDE [Suspect]
     Dates: start: 20120906, end: 20121106
  7. HYDROCORTISONE [Suspect]
     Dates: start: 20120906, end: 20121023
  8. L-ASPARAGINASE [Suspect]
     Dates: start: 20120906, end: 20121009
  9. LEUCOVORIN [Suspect]
     Dates: start: 20120906, end: 20121024
  10. METHOTREXATE [Suspect]
     Dates: start: 20120906, end: 20121023
  11. PREDNISONE [Suspect]
     Dates: start: 20120906, end: 20120913
  12. VINCRISTINE [Suspect]
     Dates: start: 20120906, end: 20121005
  13. CLOFARABINE [Suspect]
  14. ARA-C [Suspect]

REACTIONS (1)
  - Sepsis [Not Recovered/Not Resolved]
